FAERS Safety Report 15433062 (Version 1)
Quarter: 2018Q3

REPORT INFORMATION
  Report Type: Spontaneous
  Country: AU (occurrence: AU)
  Receive Date: 20180927
  Receipt Date: 20180927
  Transmission Date: 20181010
  Serious: No
  Sender: FDA-Public Use
  Company Number: AU-NOVEN PHARMACEUTICALS, INC.-AU2018000322

PATIENT

DRUGS (1)
  1. ESTRADIOL/NORETHISTERONE ACETATE [Suspect]
     Active Substance: ESTRADIOL\NORETHINDRONE ACETATE
     Indication: HOT FLUSH
     Dosage: UNK, EVERY 3.5 DAYS
     Route: 062

REACTIONS (8)
  - Headache [Unknown]
  - Hot flush [Unknown]
  - Wrong technique in product usage process [Unknown]
  - Insomnia [Unknown]
  - Rash [Unknown]
  - Application site swelling [Unknown]
  - Food craving [Unknown]
  - Skin irritation [Unknown]
